FAERS Safety Report 11293996 (Version 1)
Quarter: 2015Q3

REPORT INFORMATION
  Report Type: Spontaneous
  Country: US (occurrence: US)
  Receive Date: 20150722
  Receipt Date: 20150722
  Transmission Date: 20151125
  Serious: No
  Sender: FDA-Public Use
  Company Number: US-AMGEN-USASP2015050552

PATIENT
  Age: 46 Year
  Sex: Female

DRUGS (10)
  1. ASPIRIN                            /00002701/ [Concomitant]
     Active Substance: ASPIRIN
     Dosage: 81 MG, UNK
  2. OS-CAL + D [Concomitant]
     Dosage: 2 TABLETS TWICE DAILY
  3. IRON [Concomitant]
     Active Substance: IRON
     Dosage: 325MG TWICE DAILY
  4. NORVASC [Concomitant]
     Active Substance: AMLODIPINE BESYLATE
     Dosage: 5 MG, TWICE DAILY
  5. FIORICET [Concomitant]
     Active Substance: ACETAMINOPHEN\BUTALBITAL\CAFFEINE
     Dosage: UNK UNK, AS NEEDED
  6. COREG [Concomitant]
     Active Substance: CARVEDILOL
     Dosage: 6.25MG TWICE DAILY
  7. LISINOPRIL. [Concomitant]
     Active Substance: LISINOPRIL
     Dosage: 5MG TWICE DAILY
  8. MAGNESIUM OXIDE. [Concomitant]
     Active Substance: MAGNESIUM OXIDE
     Dosage: 400MG TWICE DAILY
  9. K-DUR [Concomitant]
     Active Substance: POTASSIUM CHLORIDE
     Dosage: 20 MEQ TWICE DAILY
  10. KYPROLIS [Suspect]
     Active Substance: CARFILZOMIB
     Indication: PRODUCT USED FOR UNKNOWN INDICATION
     Dosage: UNK UNK, TWICE A WEEK
     Route: 042
     Dates: start: 2015, end: 2015

REACTIONS (4)
  - Haemoglobin decreased [Not Recovered/Not Resolved]
  - Menorrhagia [Not Recovered/Not Resolved]
  - Off label use [Unknown]
  - Hypomenorrhoea [Not Recovered/Not Resolved]

NARRATIVE: CASE EVENT DATE: 2015
